FAERS Safety Report 7341601-0 (Version None)
Quarter: 2011Q1

REPORT INFORMATION
  Report Type: 
  Country: None (occurrence: None)
  Receive Date: 20110228
  Receipt Date: 20110203
  Transmission Date: 20110831
  Serious: Yes (Hospitalization)
  Sender: FDA-Public Use
  Company Number: 2135225-2011-00013

PATIENT
  Age: 54 Year
  Sex: Male

DRUGS (1)
  1. POLIDOCASKLEROL 0.5% (JAPAN) [Suspect]
     Indication: VARICOSE VEIN
     Dosage: I. V.
     Route: 042

REACTIONS (1)
  - ACUTE PULMONARY OEDEMA [None]
